FAERS Safety Report 22346290 (Version 1)
Quarter: 2023Q2

REPORT INFORMATION
  Report Type: Spontaneous
  Country: CN (occurrence: CN)
  Receive Date: 20230519
  Receipt Date: 20230519
  Transmission Date: 20230722
  Serious: Yes (Death, Life-Threatening)
  Sender: FDA-Public Use
  Company Number: CN-BAUSCH-BL-2023-007342

PATIENT
  Age: 14 Year
  Sex: Female

DRUGS (9)
  1. DEXAMETHASONE [Suspect]
     Active Substance: DEXAMETHASONE
     Indication: Acute lymphocytic leukaemia
     Dosage: INDUCTION THERAPY OF VDLD SCHEME
     Route: 065
     Dates: start: 2019, end: 2019
  2. PREDNISONE [Suspect]
     Active Substance: PREDNISONE
     Indication: Acute lymphocytic leukaemia
     Route: 048
     Dates: start: 2019, end: 2019
  3. PREDNISONE [Suspect]
     Active Substance: PREDNISONE
     Dosage: INDUCTION THERAPY OF VDLD SCHEME
     Route: 065
     Dates: start: 2019, end: 2019
  4. CYCLOPHOSPHAMIDE [Suspect]
     Active Substance: CYCLOPHOSPHAMIDE
     Indication: Acute lymphocytic leukaemia
     Dosage: INDUCTION THERAPY OF VDLD SCHEME
     Route: 065
     Dates: start: 2019, end: 2019
  5. VINCRISTINE [Suspect]
     Active Substance: VINCRISTINE
     Indication: Acute lymphocytic leukaemia
     Dosage: INDUCTION THERAPY OF VDLD SCHEME
     Route: 065
     Dates: start: 2019, end: 2019
  6. DAUNORUBICIN [Suspect]
     Active Substance: DAUNORUBICIN
     Indication: Acute lymphocytic leukaemia
     Dosage: INDUCTION THERAPY OF VDLD SCHEME
     Route: 065
     Dates: start: 2019, end: 2019
  7. ASPARAGINASE [Suspect]
     Active Substance: ASPARAGINASE
     Indication: Acute lymphocytic leukaemia
     Dosage: INDUCTION THERAPY OF VDLD SCHEME
     Route: 065
     Dates: start: 2019, end: 2019
  8. VORICONAZOLE [Concomitant]
     Active Substance: VORICONAZOLE
     Indication: Antifungal prophylaxis
     Dates: start: 201910
  9. CASPOFUNGIN [Concomitant]
     Active Substance: CASPOFUNGIN
     Indication: Antifungal prophylaxis
     Dates: start: 2019

REACTIONS (6)
  - Disseminated mucormycosis [Fatal]
  - Pulmonary mucormycosis [Fatal]
  - Respiratory failure [Fatal]
  - Septic shock [Fatal]
  - Pulmonary haemorrhage [Unknown]
  - Ventricular fibrillation [Unknown]

NARRATIVE: CASE EVENT DATE: 20190101
